FAERS Safety Report 17360719 (Version 7)
Quarter: 2022Q1

REPORT INFORMATION
  Report Type: Spontaneous
  Country: JP (occurrence: None)
  Receive Date: 20200203
  Receipt Date: 20220210
  Transmission Date: 20220423
  Serious: Yes (Life-Threatening, Hospitalization)
  Sender: FDA-Public Use
  Company Number: 2020SE13889

PATIENT
  Age: 16464 Day
  Sex: Female
  Weight: 42 kg

DRUGS (7)
  1. DAPAGLIFLOZIN [Suspect]
     Active Substance: DAPAGLIFLOZIN
     Indication: Type 1 diabetes mellitus
     Route: 048
     Dates: start: 20170916, end: 20200113
  2. HUMALOG [Suspect]
     Active Substance: INSULIN LISPRO
     Indication: Type 1 diabetes mellitus
     Dosage: 60 IN THE MORNING, 30 IN THE AFTERNOON, 100 IN THE EVENING
     Route: 058
     Dates: start: 201610, end: 20200113
  3. INSULIN GLARGINE [Suspect]
     Active Substance: INSULIN GLARGINE
     Indication: Type 1 diabetes mellitus
     Dosage: 100 IN THE EVENING
     Route: 058
     Dates: start: 201610, end: 20200113
  4. INSULIN GLARGINE [Suspect]
     Active Substance: INSULIN GLARGINE
     Indication: Type 1 diabetes mellitus
     Dosage: 10 UNITS IN THE EVENING
     Route: 058
     Dates: start: 20200116, end: 20200126
  5. METFORMIN HYDROCHLORIDE [Suspect]
     Active Substance: METFORMIN HYDROCHLORIDE
     Indication: Type 1 diabetes mellitus
     Route: 048
     Dates: start: 20170506, end: 20200113
  6. TRESIBA [Suspect]
     Active Substance: INSULIN DEGLUDEC
     Indication: Type 2 diabetes mellitus
     Dosage: 10 UNITS IN THE EVENING
     Route: 065
     Dates: start: 20200121
  7. INDINAVIR [Suspect]
     Active Substance: INDINAVIR
     Indication: Influenza
     Dosage: 10 UNITS IN THE EVENING
     Route: 065
     Dates: start: 20200114

REACTIONS (2)
  - Diabetic ketoacidosis [Recovered/Resolved]
  - Influenza [Recovered/Resolved]

NARRATIVE: CASE EVENT DATE: 20200113
